FAERS Safety Report 21676741 (Version 2)
Quarter: 2023Q1

REPORT INFORMATION
  Report Type: Report from Study
  Country: US (occurrence: US)
  Receive Date: 20221202
  Receipt Date: 20230109
  Transmission Date: 20230418
  Serious: Yes (Other)
  Sender: FDA-Public Use
  Company Number: US-ABBVIE-4206061

PATIENT
  Sex: Female

DRUGS (2)
  1. SKYRIZI [Suspect]
     Active Substance: RISANKIZUMAB-RZAA
     Indication: Psoriatic arthropathy
     Route: 058
     Dates: start: 20221110
  2. SKYRIZI [Suspect]
     Active Substance: RISANKIZUMAB-RZAA

REACTIONS (11)
  - Pleurisy [Recovering/Resolving]
  - Pleural effusion [Not Recovered/Not Resolved]
  - Musculoskeletal chest pain [Recovering/Resolving]
  - Oropharyngeal pain [Recovering/Resolving]
  - Pneumonia [Recovering/Resolving]
  - Arthralgia [Recovered/Resolved]
  - Fall [Recovering/Resolving]
  - Pain in extremity [Recovering/Resolving]
  - Chills [Recovering/Resolving]
  - Arthralgia [Recovering/Resolving]
  - Fibrin D dimer increased [Unknown]

NARRATIVE: CASE EVENT DATE: 20220101
